FAERS Safety Report 23766651 (Version 1)
Quarter: 2024Q2

REPORT INFORMATION
  Report Type: Spontaneous
  Country: FR (occurrence: FR)
  Receive Date: 20240422
  Receipt Date: 20240422
  Transmission Date: 20240716
  Serious: Yes (Disabling)
  Sender: FDA-Public Use
  Company Number: None

PATIENT
  Age: 41 Year
  Sex: Female

DRUGS (2)
  1. XGEVA [Suspect]
     Active Substance: DENOSUMAB
     Indication: Bone giant cell tumour
     Dosage: 1 DOSAGE FORM, Q4WK (ONE INJECTION EVERY 4 WEEKS)
     Route: 058
     Dates: start: 2015, end: 202201
  2. XGEVA [Suspect]
     Active Substance: DENOSUMAB
     Dosage: 1 DOSAGE FORM, Q3MO (ONE INJECTION EVERY 3 MONTHS)
     Route: 058
     Dates: start: 202202

REACTIONS (2)
  - Femur fracture [Not Recovered/Not Resolved]
  - Stress fracture [Not Recovered/Not Resolved]

NARRATIVE: CASE EVENT DATE: 20230101
